FAERS Safety Report 8544226-4 (Version None)
Quarter: 2012Q3

REPORT INFORMATION
  Report Type: 
  Country: None (occurrence: None)
  Receive Date: 20120727
  Receipt Date: 20120608
  Transmission Date: 20120928
  Serious: Yes (Death)
  Sender: FDA-Public Use
  Company Number: US-009507513-2012SP021289

PATIENT

DRUGS (2)
  1. CLARITIN REDITABS [Suspect]
     Indication: SEASONAL ALLERGY
     Dosage: 10 MG, UNKNOWN
     Route: 048
     Dates: start: 20120301
  2. MINOCYCLINE HCL [Concomitant]
     Indication: ACNE
     Dosage: UNK UNK, UNKNOWN

REACTIONS (1)
  - DRUG INEFFECTIVE [None]
